FAERS Safety Report 7741676-0 (Version None)
Quarter: 2011Q3

REPORT INFORMATION
  Report Type: 
  Country: None (occurrence: None)
  Receive Date: 20110912
  Receipt Date: 20110907
  Transmission Date: 20111222
  Serious: Yes (Other)
  Sender: FDA-Public Use
  Company Number: US-SHIRE-ALL1-2011-02014

PATIENT
  Sex: Female
  Weight: 56.689 kg

DRUGS (9)
  1. ASPIRIN [Concomitant]
     Indication: PRODUCT USED FOR UNKNOWN INDICATION
     Dosage: 81 MG, 1X/DAY:QD
     Route: 048
  2. MULTI-VITAMINS [Concomitant]
     Indication: VITAMIN SUPPLEMENTATION
     Dosage: UNK, 1X/DAY:QD
     Route: 048
  3. UNSPECIFIED STATIN [Concomitant]
     Indication: BLOOD CHOLESTEROL INCREASED
     Dosage: 20 MG, 1X/DAY:QD
     Route: 048
     Dates: start: 20010101
  4. KLOR-CON [Concomitant]
     Indication: CEREBROVASCULAR ACCIDENT
     Dosage: 10 MG, 1X/DAY:QD
     Route: 048
     Dates: start: 19740101
  5. BENAZEPRIL HYDROCHLORIDE [Concomitant]
     Indication: CEREBROVASCULAR ACCIDENT
     Dosage: 40 MG, 1X/DAY:QD
     Route: 048
     Dates: start: 19740101
  6. LIALDA [Suspect]
     Indication: COLITIS ULCERATIVE
     Dosage: 4.8 G, 1X/DAY:QD
     Route: 048
     Dates: start: 20100501, end: 20100601
  7. VERAPAMIL [Concomitant]
     Indication: CEREBROVASCULAR ACCIDENT
     Dosage: 120 MG, 1X/DAY:QD
     Route: 048
     Dates: start: 19740101
  8. FISH OIL [Concomitant]
     Indication: VITAMIN SUPPLEMENTATION
     Dosage: UNK, 1X/DAY:QD
     Route: 048
  9. VITAMIN D [Concomitant]
     Indication: VITAMIN SUPPLEMENTATION
     Dosage: UNK, 1X/DAY:QD
     Route: 048

REACTIONS (3)
  - BREAST CANCER [None]
  - DRUG INEFFECTIVE [None]
  - MEMORY IMPAIRMENT [None]
